FAERS Safety Report 7478743-5 (Version None)
Quarter: 2011Q2

REPORT INFORMATION
  Report Type: 
  Country: None (occurrence: None)
  Receive Date: 20110513
  Receipt Date: 20110405
  Transmission Date: 20111010
  Serious: Yes (Other)
  Sender: FDA-Public Use
  Company Number: US-BAYER-201036199NA

PATIENT
  Age: 34 Year
  Sex: Female
  Weight: 90.703 kg

DRUGS (13)
  1. ADIPEX [Concomitant]
     Dosage: UNK
     Dates: start: 20040727
  2. CELEBREX [Concomitant]
     Dosage: UNK
     Dates: start: 20040727
  3. YASMIN [Suspect]
     Indication: PRODUCT USED FOR UNKNOWN INDICATION
     Dosage: UNK UNK, QD
     Route: 048
     Dates: start: 20040101, end: 20090101
  4. PHENTERMINE [Concomitant]
     Dosage: 37.5 MG, QD
     Route: 048
  5. NAPROXEN [Concomitant]
     Dosage: 500 MG, BID
     Route: 048
     Dates: start: 20040817
  6. ACIDEX [CALCIUM CARBONATE,SODIUM ALGINATE,SODIUM BICARBONATE] [Concomitant]
     Dosage: 20 MG, QD
     Route: 048
  7. GLUCOPHAGE [Concomitant]
     Indication: WEIGHT DECREASED
     Dosage: 500 MG, BID
     Route: 048
  8. PROTONIX [Concomitant]
     Dosage: 40 MG, QD
     Route: 048
  9. WELLBUTRIN [Concomitant]
     Dosage: 25 MG, QD
     Route: 048
  10. FLONASE [Concomitant]
     Dosage: UNK UNK, QD
  11. LIQUIBID [Concomitant]
     Dosage: UNK UNK, QD
     Route: 048
  12. ADIPEX [Concomitant]
     Dosage: 37.5 MG, QD
     Route: 048
     Dates: start: 20040330
  13. ALLEGRA [Concomitant]

REACTIONS (4)
  - BACK PAIN [None]
  - NAUSEA [None]
  - GALLBLADDER DISORDER [None]
  - CHOLECYSTITIS CHRONIC [None]
